FAERS Safety Report 16613569 (Version 1)
Quarter: 2019Q3

REPORT INFORMATION
  Report Type: Spontaneous
  Country: DE (occurrence: DE)
  Receive Date: 20190723
  Receipt Date: 20190723
  Transmission Date: 20191004
  Serious: Yes (Other)
  Sender: FDA-Public Use
  Company Number: DE-SUN PHARMACEUTICAL INDUSTRIES LTD-2019R1-213851

PATIENT
  Age: 47 Year
  Sex: Female

DRUGS (1)
  1. INDOMETHACIN. [Suspect]
     Active Substance: INDOMETHACIN
     Indication: CHRONIC PAROXYSMAL HEMICRANIA
     Dosage: 25 MG, UNK
     Route: 065

REACTIONS (1)
  - Psychiatric symptom [Unknown]
